FAERS Safety Report 13108368 (Version 2)
Quarter: 2017Q1

REPORT INFORMATION
  Report Type: Spontaneous
  Country: US (occurrence: US)
  Receive Date: 20170112
  Receipt Date: 20170125
  Transmission Date: 20170428
  Serious: Yes (Other)
  Sender: FDA-Public Use
  Company Number: US-DRREDDYS-USA/USA/17/0086342

PATIENT
  Sex: Female

DRUGS (1)
  1. CLOPIDOGREL BISULFATE. [Suspect]
     Active Substance: CLOPIDOGREL BISULFATE
     Indication: ANTIPLATELET THERAPY
     Dosage: 5 (DAYS)
     Route: 065

REACTIONS (3)
  - Dermatitis bullous [Recovered/Resolved]
  - Drug hypersensitivity [Recovered/Resolved]
  - Fixed drug eruption [Recovered/Resolved]
